FAERS Safety Report 24877088 (Version 1)
Quarter: 2025Q1

REPORT INFORMATION
  Report Type: Spontaneous
  Country: FR (occurrence: FR)
  Receive Date: 20250123
  Receipt Date: 20250123
  Transmission Date: 20250409
  Serious: Yes (Life-Threatening)
  Sender: AMGEN
  Company Number: FR-AMGEN-FRASP2025009939

PATIENT
  Age: 15 Year
  Sex: Male
  Weight: 79 kg

DRUGS (9)
  1. TEPEZZA [Suspect]
     Active Substance: TEPROTUMUMAB-TRBW
     Indication: Endocrine ophthalmopathy
     Route: 040
     Dates: start: 20211105
  2. TEPEZZA [Suspect]
     Active Substance: TEPROTUMUMAB-TRBW
     Dosage: 20 MILLIGRAM/KILOGRAM, Q3WK
     Route: 040
     Dates: start: 20211126
  3. TEPEZZA [Suspect]
     Active Substance: TEPROTUMUMAB-TRBW
     Dosage: 20 MILLIGRAM/KILOGRAM, Q3WK
     Route: 040
     Dates: start: 20211215
  4. TEPEZZA [Suspect]
     Active Substance: TEPROTUMUMAB-TRBW
     Dosage: 20 MILLIGRAM/KILOGRAM, Q3WK
     Route: 040
     Dates: start: 20220107
  5. TEPEZZA [Suspect]
     Active Substance: TEPROTUMUMAB-TRBW
     Dosage: 20 MILLIGRAM/KILOGRAM, Q3WK (LAST INFUSION)
     Route: 040
     Dates: start: 20220126
  6. CARBIMAZOLE [Concomitant]
     Active Substance: CARBIMAZOLE
  7. CARBIMAZOLE [Concomitant]
     Active Substance: CARBIMAZOLE
  8. HYDROCORTISONE ACETATE [Concomitant]
     Active Substance: HYDROCORTISONE ACETATE
     Dosage: 7.5 MILLIGRAM (MORNING AND EVENING0
  9. SODIUM SELENITE [Concomitant]
     Active Substance: SODIUM SELENITE
     Dosage: 200 MICROGRAM, QD

REACTIONS (2)
  - Thrombocytopenia [Unknown]
  - Coma [Recovering/Resolving]

NARRATIVE: CASE EVENT DATE: 20211126
